FAERS Safety Report 14107342 (Version 1)
Quarter: 2017Q4

REPORT INFORMATION
  Report Type: Spontaneous
  Country: US (occurrence: US)
  Receive Date: 20171019
  Receipt Date: 20171019
  Transmission Date: 20180321
  Serious: Yes (Other)
  Sender: FDA-Public Use
  Company Number: None

PATIENT
  Age: 22 Year
  Sex: Female
  Weight: 76.5 kg

DRUGS (1)
  1. SERTRALINE [Suspect]
     Active Substance: SERTRALINE HYDROCHLORIDE
     Indication: PANIC DISORDER
     Dosage: ?          QUANTITY:1 TABLET(S);?
     Route: 048

REACTIONS (10)
  - Weight increased [None]
  - Vertigo [None]
  - Dizziness [None]
  - Amnesia [None]
  - Headache [None]
  - Decreased appetite [None]
  - Anxiety [None]
  - Withdrawal syndrome [None]
  - Restless legs syndrome [None]
  - Diarrhoea [None]

NARRATIVE: CASE EVENT DATE: 20161231
